FAERS Safety Report 15705490 (Version 4)
Quarter: 2019Q1

REPORT INFORMATION
  Report Type: Spontaneous
  Country: GB (occurrence: GB)
  Receive Date: 20181210
  Receipt Date: 20190121
  Transmission Date: 20190417
  Serious: Yes (Death, Other)
  Sender: FDA-Public Use
  Company Number: GB-SA-2018SA332072

PATIENT
  Sex: Male

DRUGS (1)
  1. CAMPATH [Suspect]
     Active Substance: ALEMTUZUMAB
     Route: 041

REACTIONS (5)
  - T-cell prolymphocytic leukaemia [Fatal]
  - Drug ineffective [Fatal]
  - Disease progression [Fatal]
  - Renal impairment [Fatal]
  - Cardiac failure congestive [Fatal]
